FAERS Safety Report 9852458 (Version 2)
Quarter: 2014Q1

REPORT INFORMATION
  Report Type: Spontaneous
  Country: FR (occurrence: FR)
  Receive Date: 20140129
  Receipt Date: 20140311
  Transmission Date: 20141002
  Serious: Yes (Hospitalization, Other)
  Sender: FDA-Public Use
  Company Number: FR-JNJFOC-20140114073

PATIENT
  Age: 31 Year
  Sex: Female
  Weight: 133 kg

DRUGS (6)
  1. SIMPONI [Suspect]
     Indication: ANKYLOSING SPONDYLITIS
     Route: 058
  2. SIMPONI [Suspect]
     Indication: ANKYLOSING SPONDYLITIS
     Route: 058
     Dates: start: 20131229
  3. SIMPONI [Suspect]
     Indication: ANKYLOSING SPONDYLITIS
     Route: 058
     Dates: start: 201304
  4. NAPROSYNE [Concomitant]
     Indication: ANKYLOSING SPONDYLITIS
     Route: 048
  5. INEXIUM [Concomitant]
     Indication: ANKYLOSING SPONDYLITIS
     Route: 065
  6. NORDAZ [Concomitant]
     Route: 065

REACTIONS (2)
  - Angioedema [Not Recovered/Not Resolved]
  - Lung infection [Unknown]
